FAERS Safety Report 15932948 (Version 27)
Quarter: 2024Q1

REPORT INFORMATION
  Report Type: Spontaneous
  Country: CA (occurrence: CA)
  Receive Date: 20190207
  Receipt Date: 20240315
  Transmission Date: 20240410
  Serious: Yes (Life-Threatening, Hospitalization, Disabling, Other)
  Sender: FDA-Public Use
  Company Number: CA-ABBVIE-19K-028-2655966-00

PATIENT
  Age: 3 Year
  Sex: Female
  Weight: 64 kg

DRUGS (46)
  1. HUMIRA [Suspect]
     Active Substance: ADALIMUMAB
     Indication: Juvenile idiopathic arthritis
     Route: 058
  2. HUMIRA [Suspect]
     Active Substance: ADALIMUMAB
     Indication: Still^s disease
     Route: 058
  3. HUMIRA [Suspect]
     Active Substance: ADALIMUMAB
     Indication: Rheumatoid arthritis
  4. ADALIMUMAB [Suspect]
     Active Substance: ADALIMUMAB\ISOPROPYL ALCOHOL
     Indication: Juvenile idiopathic arthritis
     Route: 058
  5. ADALIMUMAB [Suspect]
     Active Substance: ADALIMUMAB\ISOPROPYL ALCOHOL
     Indication: Rheumatoid arthritis
  6. ACTEMRA [Suspect]
     Active Substance: TOCILIZUMAB
     Indication: Juvenile idiopathic arthritis
     Route: 042
  7. ACTEMRA [Suspect]
     Active Substance: TOCILIZUMAB
     Indication: Juvenile idiopathic arthritis
     Route: 042
  8. ACTEMRA [Suspect]
     Active Substance: TOCILIZUMAB
     Indication: Juvenile idiopathic arthritis
     Route: 065
  9. ANAKINRA [Suspect]
     Active Substance: ANAKINRA
     Indication: Rheumatoid arthritis
     Route: 058
  10. ANAKINRA [Suspect]
     Active Substance: ANAKINRA
     Indication: Rheumatoid arthritis
     Route: 065
  11. ANAKINRA [Suspect]
     Active Substance: ANAKINRA
     Indication: Rheumatoid arthritis
     Route: 058
  12. ENBREL [Suspect]
     Active Substance: ETANERCEPT
     Indication: Juvenile idiopathic arthritis
     Route: 058
  13. ENBREL [Suspect]
     Active Substance: ETANERCEPT
     Indication: Juvenile idiopathic arthritis
     Route: 058
  14. ENBREL [Suspect]
     Active Substance: ETANERCEPT
     Indication: Juvenile idiopathic arthritis
     Route: 058
  15. HYDROXYCHLOROQUINE [Suspect]
     Active Substance: HYDROXYCHLOROQUINE
     Indication: Juvenile idiopathic arthritis
     Route: 048
  16. INFLIXIMAB [Suspect]
     Active Substance: INFLIXIMAB
     Indication: Juvenile idiopathic arthritis
     Route: 042
  17. INFLIXIMAB [Suspect]
     Active Substance: INFLIXIMAB
     Indication: Juvenile idiopathic arthritis
     Route: 042
  18. METHOTREXATE [Suspect]
     Active Substance: METHOTREXATE
     Indication: Juvenile idiopathic arthritis
     Route: 058
  19. METHOTREXATE [Suspect]
     Active Substance: METHOTREXATE
     Indication: Juvenile idiopathic arthritis
     Route: 058
  20. METHOTREXATE [Suspect]
     Active Substance: METHOTREXATE
     Indication: Juvenile idiopathic arthritis
     Route: 058
  21. ORENCIA [Suspect]
     Active Substance: ABATACEPT
     Indication: Rheumatoid arthritis
     Route: 042
  22. PREDNISONE [Suspect]
     Active Substance: PREDNISONE
     Indication: Juvenile idiopathic arthritis
     Route: 048
  23. PREDNISONE [Suspect]
     Active Substance: PREDNISONE
     Indication: Juvenile idiopathic arthritis
     Route: 048
  24. PREDNISONE [Suspect]
     Active Substance: PREDNISONE
     Indication: Juvenile idiopathic arthritis
     Route: 048
  25. PREDNISONE [Suspect]
     Active Substance: PREDNISONE
     Indication: Juvenile idiopathic arthritis
     Route: 048
  26. PREDNISONE [Suspect]
     Active Substance: PREDNISONE
     Indication: Juvenile idiopathic arthritis
     Route: 048
  27. SULFASALAZINE [Suspect]
     Active Substance: SULFASALAZINE
     Indication: Juvenile idiopathic arthritis
     Route: 048
  28. TRIAMCINOLONE HEXACETONIDE [Suspect]
     Active Substance: TRIAMCINOLONE HEXACETONIDE
     Indication: Juvenile idiopathic arthritis
     Route: 050
  29. TRIAMCINOLONE [Suspect]
     Active Substance: TRIAMCINOLONE
     Indication: Rheumatoid arthritis
     Route: 014
  30. NAPROXEN [Suspect]
     Active Substance: NAPROXEN
     Indication: Juvenile idiopathic arthritis
     Route: 065
  31. METHOTREXATE SODIUM [Suspect]
     Active Substance: METHOTREXATE SODIUM
     Indication: Juvenile idiopathic arthritis
     Route: 065
  32. KINERET [Suspect]
     Active Substance: ANAKINRA
     Indication: Rheumatoid arthritis
     Route: 058
  33. NAPROXEN SODIUM [Suspect]
     Active Substance: NAPROXEN\NAPROXEN SODIUM
     Indication: Product used for unknown indication
     Route: 065
  34. GAMMAGARD [Suspect]
     Active Substance: HUMAN IMMUNOGLOBULIN G
     Indication: Juvenile idiopathic arthritis
     Route: 042
  35. GAMMAGARD [Suspect]
     Active Substance: HUMAN IMMUNOGLOBULIN G
     Indication: Juvenile idiopathic arthritis
     Route: 030
  36. HYDROXYCHLOROQUINE SULFATE [Suspect]
     Active Substance: HYDROXYCHLOROQUINE SULFATE
     Indication: Juvenile idiopathic arthritis
     Route: 048
  37. GAMMAGARD [Suspect]
     Active Substance: HUMAN IMMUNOGLOBULIN G
     Indication: Juvenile idiopathic arthritis
     Route: 042
  38. TRIAMCINOLONE ACETONIDE [Suspect]
     Active Substance: TRIAMCINOLONE ACETONIDE
     Indication: Juvenile idiopathic arthritis
     Route: 014
  39. TOCILIZUMAB [Suspect]
     Active Substance: TOCILIZUMAB
     Indication: Juvenile idiopathic arthritis
     Route: 041
  40. NAPROXEN [Suspect]
     Active Substance: NAPROXEN
     Indication: Juvenile idiopathic arthritis
     Route: 065
  41. PREDNISONE [Suspect]
     Active Substance: PREDNISONE
     Indication: Juvenile idiopathic arthritis
     Route: 048
  42. PREDNISONE [Suspect]
     Active Substance: PREDNISONE
     Indication: Juvenile idiopathic arthritis
     Route: 048
  43. PREDNISONE [Suspect]
     Active Substance: PREDNISONE
     Indication: Juvenile idiopathic arthritis
     Route: 048
  44. VACCINIA IMMUNE GLOBULIN HUMAN [Suspect]
     Active Substance: VACCINIA IMMUNE GLOBULIN HUMAN
     Indication: Product used for unknown indication
     Route: 065
  45. HUMAN IMMUNOGLOBULIN G [Suspect]
     Active Substance: HUMAN IMMUNOGLOBULIN G
     Indication: Juvenile idiopathic arthritis
     Route: 042
  46. FOLIC ACID [Concomitant]
     Active Substance: FOLIC ACID
     Indication: Product used for unknown indication

REACTIONS (47)
  - Quality of life decreased [Not Recovered/Not Resolved]
  - Mobility decreased [Not Recovered/Not Resolved]
  - Adrenal insufficiency [Not Recovered/Not Resolved]
  - Drug intolerance [Not Recovered/Not Resolved]
  - Product use in unapproved indication [Not Recovered/Not Resolved]
  - Human antichimeric antibody positive [Not Recovered/Not Resolved]
  - Joint effusion [Not Recovered/Not Resolved]
  - Off label use [Not Recovered/Not Resolved]
  - Joint injury [Not Recovered/Not Resolved]
  - Obesity [Not Recovered/Not Resolved]
  - Body height below normal [Not Recovered/Not Resolved]
  - Red blood cell sedimentation rate increased [Not Recovered/Not Resolved]
  - Bone density decreased [Not Recovered/Not Resolved]
  - Bone density increased [Not Recovered/Not Resolved]
  - C-reactive protein increased [Not Recovered/Not Resolved]
  - Condition aggravated [Not Recovered/Not Resolved]
  - Wheelchair user [Not Recovered/Not Resolved]
  - Contraindicated product administered [Not Recovered/Not Resolved]
  - Loss of personal independence in daily activities [Not Recovered/Not Resolved]
  - Underdose [Not Recovered/Not Resolved]
  - Dizziness [Not Recovered/Not Resolved]
  - Intentional product use issue [Not Recovered/Not Resolved]
  - Antibody test positive [Not Recovered/Not Resolved]
  - Arthritis [Not Recovered/Not Resolved]
  - Polyarthritis [Not Recovered/Not Resolved]
  - Synovitis [Not Recovered/Not Resolved]
  - Arthropathy [Not Recovered/Not Resolved]
  - Therapy non-responder [Not Recovered/Not Resolved]
  - Juvenile idiopathic arthritis [Not Recovered/Not Resolved]
  - Nausea [Not Recovered/Not Resolved]
  - Drug ineffective [Not Recovered/Not Resolved]
  - Septic shock [Not Recovered/Not Resolved]
  - Diarrhoea [Not Recovered/Not Resolved]
  - Drug specific antibody [Not Recovered/Not Resolved]
  - Psoriasis [Not Recovered/Not Resolved]
  - Vomiting [Not Recovered/Not Resolved]
  - Arthralgia [Not Recovered/Not Resolved]
  - Prescribed underdose [Not Recovered/Not Resolved]
  - Immunodeficiency [Not Recovered/Not Resolved]
  - Hypotension [Not Recovered/Not Resolved]
  - Hypokalaemia [Not Recovered/Not Resolved]
  - Hypocalcaemia [Not Recovered/Not Resolved]
  - Gastroenteritis viral [Not Recovered/Not Resolved]
  - Pyrexia [Not Recovered/Not Resolved]
  - Liver function test abnormal [Not Recovered/Not Resolved]
  - Pleural effusion [Not Recovered/Not Resolved]
  - Loss of consciousness [Not Recovered/Not Resolved]
